FAERS Safety Report 10052396 (Version 2)
Quarter: 2014Q2

REPORT INFORMATION
  Report Type: Spontaneous
  Country: ES (occurrence: ES)
  Receive Date: 20140402
  Receipt Date: 20140411
  Transmission Date: 20141212
  Serious: Yes (Other)
  Sender: FDA-Public Use
  Company Number: ES-ROCHE-1374241

PATIENT
  Age: 40 Year
  Sex: Male

DRUGS (4)
  1. XOLAIR [Suspect]
     Indication: ASTHMA
     Route: 065
     Dates: end: 20130702
  2. XOLAIR [Suspect]
     Route: 065
     Dates: end: 201309
  3. XOLAIR [Suspect]
     Route: 065
     Dates: start: 201403, end: 201403
  4. XOLAIR [Suspect]
     Route: 065

REACTIONS (2)
  - Craniocerebral injury [Recovered/Resolved]
  - Vertigo [Recovered/Resolved]
